FAERS Safety Report 7063234-6 (Version None)
Quarter: 2010Q4

REPORT INFORMATION
  Report Type: 
  Country: None (occurrence: None)
  Receive Date: 20101026
  Receipt Date: 20100709
  Transmission Date: 20110411
  Serious: Yes (Other)
  Sender: FDA-Public Use
  Company Number: US-PFIZER INC-2010086460

PATIENT

DRUGS (1)
  1. LIPITOR [Suspect]

REACTIONS (1)
  - NEUROPATHY PERIPHERAL [None]
